FAERS Safety Report 5102248-X (Version None)
Quarter: 2006Q3

REPORT INFORMATION
  Report Type: 
  Country: None (occurrence: None)
  Receive Date: 20060912
  Receipt Date: 20060829
  Transmission Date: 20061208
  Serious: Yes (Other)
  Sender: FDA-Public Use
  Company Number: GBWYE798929AUG06

PATIENT
  Sex: Female

DRUGS (2)
  1. ENBREL [Suspect]
     Indication: PSORIATIC ARTHROPATHY
     Route: 058
     Dates: start: 20060525
  2. METHOTREXATE [Concomitant]

REACTIONS (5)
  - ERYTHEMA [None]
  - FEELING HOT [None]
  - PAIN [None]
  - SKIN NODULE [None]
  - SKIN REACTION [None]
